FAERS Safety Report 22098390 (Version 1)
Quarter: 2023Q1

REPORT INFORMATION
  Report Type: Spontaneous
  Country: LT (occurrence: LT)
  Receive Date: 20230315
  Receipt Date: 20230315
  Transmission Date: 20230417
  Serious: Yes (Other)
  Sender: FDA-Public Use
  Company Number: None

PATIENT
  Age: 40 Year
  Sex: Female
  Weight: 70 kg

DRUGS (1)
  1. CYCLOSPORINE [Suspect]
     Active Substance: CYCLOSPORINE
     Indication: Dermatitis atopic
     Dates: start: 20230105, end: 20230202

REACTIONS (4)
  - Impaired quality of life [Recovered/Resolved]
  - Hyperbilirubinaemia [Recovered/Resolved]
  - Nausea [Recovered/Resolved]
  - Abdominal pain upper [Recovered/Resolved]

NARRATIVE: CASE EVENT DATE: 20230116
